FAERS Safety Report 25561602 (Version 1)
Quarter: 2025Q3

REPORT INFORMATION
  Report Type: Spontaneous
  Country: US (occurrence: US)
  Receive Date: 20250716
  Receipt Date: 20250716
  Transmission Date: 20251020
  Serious: No
  Sender: NOVO NORDISK
  Company Number: US-NOVOPROD-1352371

PATIENT
  Age: 70 Year

DRUGS (2)
  1. OZEMPIC [Suspect]
     Active Substance: SEMAGLUTIDE
     Indication: Type 2 diabetes mellitus
     Dosage: 0.25 MG, QW
     Route: 058
  2. NovoFine Plus 4mm (32G) [Concomitant]
     Indication: Device therapy
     Route: 058

REACTIONS (8)
  - Nasopharyngitis [Recovered/Resolved]
  - Increased appetite [Unknown]
  - Weight increased [Unknown]
  - Increased appetite [Unknown]
  - Productive cough [Unknown]
  - Cough [Unknown]
  - Drug ineffective [Unknown]
  - Off label use [Unknown]

NARRATIVE: CASE EVENT DATE: 20240101
